FAERS Safety Report 7525597-4 (Version None)
Quarter: 2011Q2

REPORT INFORMATION
  Report Type: 
  Country: None (occurrence: None)
  Receive Date: 20110606
  Receipt Date: 20110523
  Transmission Date: 20111010
  Serious: Yes (Other)
  Sender: FDA-Public Use
  Company Number: PHHY2011SE44226

PATIENT
  Age: 49 Year
  Sex: Female

DRUGS (1)
  1. ZOLEDRONIC ACID [Suspect]
     Indication: OSTEOPOROSIS
     Dosage: 5 MG
     Route: 042
     Dates: start: 20101001

REACTIONS (3)
  - METASTASES TO BONE [None]
  - BREAST CANCER METASTATIC [None]
  - METASTASES TO LIVER [None]
